FAERS Safety Report 10727211 (Version 2)
Quarter: 2015Q1

REPORT INFORMATION
  Report Type: Report from Study
  Country: DE (occurrence: DE)
  Receive Date: 20150121
  Receipt Date: 20150128
  Transmission Date: 20150721
  Serious: Yes (Hospitalization)
  Sender: FDA-Public Use
  Company Number: DE-TEVA-510596USA

PATIENT
  Sex: Female

DRUGS (13)
  1. RITUXIMAB [Suspect]
     Active Substance: RITUXIMAB
     Dosage: 700 MG, CYCLIC, CYCLE 3
     Route: 042
     Dates: start: 20130918
  2. BENDAMUSTINE HYDROCHLORIDE [Suspect]
     Active Substance: BENDAMUSTINE HYDROCHLORIDE
     Dosage: 167 MG, CYCLIC, CYCLE 2
     Route: 042
     Dates: start: 20130821, end: 20130822
  3. RITUXIMAB [Suspect]
     Active Substance: RITUXIMAB
     Dosage: 700 MG, CYCLIC, CYCLE 2
     Route: 042
     Dates: start: 20130821
  4. VALMETIA [Concomitant]
     Indication: PRODUCT USED FOR UNKNOWN INDICATION
     Dosage: UNK, TWICE DAILY
     Route: 065
  5. BISOPROLOL [Concomitant]
     Active Substance: BISOPROLOL
     Indication: PRODUCT USED FOR UNKNOWN INDICATION
     Route: 065
  6. BENDAMUSTINE HYDROCHLORIDE [Suspect]
     Active Substance: BENDAMUSTINE HYDROCHLORIDE
     Indication: NON-HODGKIN^S LYMPHOMA
     Dosage: 167 MG, CYCLIC, CYCLE 1
     Route: 042
     Dates: start: 20130724, end: 20130725
  7. BENDAMUSTINE HYDROCHLORIDE [Suspect]
     Active Substance: BENDAMUSTINE HYDROCHLORIDE
     Dosage: 167 MG, CYCLIC, CYCLE 4
     Route: 042
     Dates: start: 20131029, end: 20131030
  8. FLUVASTATIN [Concomitant]
     Active Substance: FLUVASTATIN SODIUM
     Indication: PRODUCT USED FOR UNKNOWN INDICATION
     Route: 065
  9. BENDAMUSTINE HYDROCHLORIDE [Suspect]
     Active Substance: BENDAMUSTINE HYDROCHLORIDE
     Dosage: 167 MG, CYCLIC, CYCLE 3
     Route: 042
     Dates: start: 20130918, end: 20130919
  10. RITUXIMAB [Suspect]
     Active Substance: RITUXIMAB
     Indication: NON-HODGKIN^S LYMPHOMA
     Dosage: 100 MG, CYCLIC, CYCLE 1
     Route: 042
     Dates: start: 20130724
  11. RITUXIMAB [Suspect]
     Active Substance: RITUXIMAB
     Dosage: 600 MG, CYCLIC, CYCLE 1
     Route: 042
     Dates: start: 20130725
  12. RITUXIMAB [Suspect]
     Active Substance: RITUXIMAB
     Dosage: 700 MG, CYCLIC, CYCLE 4
     Route: 042
     Dates: start: 20131029
  13. PERINDOPRIL/INDAPAMIDE [Concomitant]
     Indication: PRODUCT USED FOR UNKNOWN INDICATION
     Dosage: 2.5+D, 625 MG, ONCE DAILY
     Route: 065

REACTIONS (2)
  - Syncope [Recovered/Resolved]
  - Diarrhoea [Recovered/Resolved]

NARRATIVE: CASE EVENT DATE: 20131121
